FAERS Safety Report 9714473 (Version 1)
Quarter: 2013Q4

REPORT INFORMATION
  Report Type: Spontaneous
  Country: US (occurrence: US)
  Receive Date: 20131126
  Receipt Date: 20131126
  Transmission Date: 20140711
  Serious: No
  Sender: FDA-Public Use
  Company Number: US-BIOGENIDEC-2013BI084291

PATIENT
  Age: 59 Year
  Sex: Female

DRUGS (10)
  1. TECFIDERA [Suspect]
     Indication: MULTIPLE SCLEROSIS
     Route: 048
     Dates: start: 20130626
  2. KLONOPIN [Concomitant]
  3. RITALIN [Concomitant]
  4. ARMOUR THYROID [Concomitant]
  5. PROZAC PULVULE [Concomitant]
  6. ACIDOPHILUS PROBIOTIC [Concomitant]
  7. COQ-10 [Concomitant]
  8. CVS FISH OIL CONCENTRATE CP [Concomitant]
  9. CVS VITAMIN  D [Concomitant]
  10. COMPLETE MULTIVITAMIN [Concomitant]

REACTIONS (5)
  - Night sweats [Unknown]
  - Fatigue [Not Recovered/Not Resolved]
  - Alopecia [Not Recovered/Not Resolved]
  - Flushing [Not Recovered/Not Resolved]
  - Nausea [Not Recovered/Not Resolved]
